FAERS Safety Report 10642264 (Version 1)
Quarter: 2014Q4

REPORT INFORMATION
  Report Type: Spontaneous
  Country: US (occurrence: None)
  Receive Date: 20141208
  Receipt Date: 20141208
  Transmission Date: 20150529
  Serious: Yes (Hospitalization)
  Sender: FDA-Public Use
  Company Number: None

PATIENT
  Age: 88 Year
  Sex: Female
  Weight: 67.6 kg

DRUGS (7)
  1. FAMOTIDINE. [Concomitant]
     Active Substance: FAMOTIDINE
  2. LEVOFLOXACIN 250 MG [Suspect]
     Active Substance: LEVOFLOXACIN
     Indication: URINARY TRACT INFECTION
     Dates: start: 20141122, end: 20141128
  3. ACETAMINOPHEN. [Concomitant]
     Active Substance: ACETAMINOPHEN
  4. PSYLLIUM [Concomitant]
     Active Substance: PLANTAGO SEED
  5. POTASSIUM CHLORIDE. [Concomitant]
     Active Substance: POTASSIUM CHLORIDE
  6. FENOFENADINE [Concomitant]
  7. OCUVITE [Concomitant]
     Active Substance: VITAMINS

REACTIONS (2)
  - Muscle rupture [None]
  - Tendon rupture [None]

NARRATIVE: CASE EVENT DATE: 20141129
